FAERS Safety Report 12061019 (Version 2)
Quarter: 2016Q2

REPORT INFORMATION
  Report Type: Spontaneous
  Country: JP (occurrence: JP)
  Receive Date: 20160210
  Receipt Date: 20160415
  Transmission Date: 20160815
  Serious: Yes (Death)
  Sender: FDA-Public Use
  Company Number: JP-TEVA-633239ISR

PATIENT
  Sex: Male
  Weight: 50 kg

DRUGS (4)
  1. E-FEN BUCCAL [Suspect]
     Active Substance: FENTANYL CITRATE
     Indication: BREAKTHROUGH PAIN
     Dosage: DAILY DOSE: 0MCG-50MCG
     Route: 002
     Dates: start: 20151004, end: 20151012
  2. E-FEN BUCCAL [Suspect]
     Active Substance: FENTANYL CITRATE
     Dosage: 50 MICROGRAM DAILY;
     Route: 002
     Dates: start: 20151013, end: 20151013
  3. CALONAL [Concomitant]
     Active Substance: ACETAMINOPHEN
     Indication: CANCER PAIN
     Dosage: 1200 MILLIGRAM DAILY;
     Route: 048
     Dates: start: 20150812, end: 20151010
  4. FENTOS [Concomitant]
     Active Substance: FENTANYL
     Indication: CANCER PAIN
     Dosage: 4 MILLIGRAM DAILY;
     Route: 062
     Dates: start: 20150926, end: 20151013

REACTIONS (1)
  - Bladder cancer [Fatal]
